FAERS Safety Report 24667880 (Version 2)
Quarter: 2024Q4

REPORT INFORMATION
  Report Type: Spontaneous
  Country: DE (occurrence: DE)
  Receive Date: 20241127
  Receipt Date: 20241203
  Transmission Date: 20250115
  Serious: Yes (Other)
  Sender: ROCHE
  Company Number: DE-ROCHE-10000136889

PATIENT
  Sex: Male

DRUGS (2)
  1. EMICIZUMAB [Suspect]
     Active Substance: EMICIZUMAB
     Indication: Factor VIII deficiency
     Route: 058
     Dates: start: 2021, end: 20231029
  2. VALOCTOCOGENE ROXAPARVOVEC [Concomitant]
     Active Substance: VALOCTOCOGENE ROXAPARVOVEC
     Indication: Factor VIII deficiency

REACTIONS (1)
  - Haemorrhage [Recovered/Resolved]
